FAERS Safety Report 21844411 (Version 1)
Quarter: 2023Q1

REPORT INFORMATION
  Report Type: Spontaneous
  Country: IT (occurrence: IT)
  Receive Date: 20230110
  Receipt Date: 20230110
  Transmission Date: 20230418
  Serious: Yes (Hospitalization, Other)
  Sender: FDA-Public Use
  Company Number: IT-NOVOPROD-1003997

PATIENT
  Sex: Male

DRUGS (4)
  1. TRESIBA [Suspect]
     Active Substance: INSULIN DEGLUDEC
     Indication: Monogenic diabetes
     Dosage: 26 IU
  2. TRESIBA [Suspect]
     Active Substance: INSULIN DEGLUDEC
     Indication: Glucose-6-phosphate dehydrogenase deficiency
  3. NOVORAPID [Suspect]
     Active Substance: INSULIN ASPART
     Indication: Glucose-6-phosphate dehydrogenase deficiency
  4. NOVORAPID [Suspect]
     Active Substance: INSULIN ASPART
     Indication: Monogenic diabetes
     Dosage: UNK

REACTIONS (6)
  - Metabolic acidosis [Recovered/Resolved]
  - Acute kidney injury [Recovered/Resolved]
  - Diarrhoea [Unknown]
  - Nausea [Unknown]
  - Somnolence [Unknown]
  - Vomiting [Unknown]

NARRATIVE: CASE EVENT DATE: 20221112
